FAERS Safety Report 7093060-3 (Version None)
Quarter: 2010Q4

REPORT INFORMATION
  Report Type: 
  Country: None (occurrence: None)
  Receive Date: 20101110
  Receipt Date: 20101028
  Transmission Date: 20110411
  Serious: Yes (Hospitalization, Other)
  Sender: FDA-Public Use
  Company Number: US-ELI_LILLY_AND_COMPANY-US201011000124

PATIENT
  Sex: Female

DRUGS (6)
  1. HUMULIN N [Suspect]
     Indication: TYPE 2 DIABETES MELLITUS
     Dosage: UNK, AS NEEDED
  2. HUMULIN N [Suspect]
     Dosage: UNK, AS NEEDED
  3. HUMULIN R [Suspect]
     Indication: TYPE 2 DIABETES MELLITUS
     Dosage: UNK, AS NEEDED
  4. HUMULIN R [Suspect]
     Dosage: UNK, AS NEEDED
  5. NOVOLIN 70/30 [Concomitant]
     Dosage: UNK, UNKNOWN
  6. VITAMINS [Concomitant]
     Dosage: UNK, UNKNOWN

REACTIONS (1)
  - CEREBROVASCULAR ACCIDENT [None]
